FAERS Safety Report 7982799-0 (Version None)
Quarter: 2011Q4

REPORT INFORMATION
  Report Type: 
  Country: None (occurrence: None)
  Receive Date: 20111215
  Receipt Date: 20111206
  Transmission Date: 20120403
  Serious: Yes (Hospitalization)
  Sender: FDA-Public Use
  Company Number: US-BAYER-2011-074780

PATIENT
  Age: 19 Year
  Sex: Female

DRUGS (2)
  1. VENTOLIN [Concomitant]
     Dosage: UNK
     Dates: start: 20080901
  2. YAZ [Suspect]
     Dosage: UNK
     Dates: start: 20080801, end: 20090801

REACTIONS (3)
  - GALLBLADDER INJURY [None]
  - PAIN [None]
  - INJURY [None]
